FAERS Safety Report 8980614 (Version 6)
Quarter: 2013Q1

REPORT INFORMATION
  Report Type: Spontaneous
  Country: US (occurrence: US)
  Receive Date: 20121221
  Receipt Date: 20130217
  Transmission Date: 20140127
  Serious: Yes (Death, Other)
  Sender: FDA-Public Use
  Company Number: US-JNJFOC-20121209140

PATIENT
  Sex: Male

DRUGS (5)
  1. REMICADE [Suspect]
     Indication: CROHN^S DISEASE
     Route: 042
     Dates: start: 200306, end: 20061012
  2. HUMIRA [Concomitant]
  3. 6-MERCAPTOPURINE [Concomitant]
     Route: 048
     Dates: start: 200304
  4. ASACOL [Concomitant]
     Route: 048
     Dates: start: 200304
  5. SINGULAIR [Concomitant]

REACTIONS (2)
  - Hepatosplenic T-cell lymphoma [Not Recovered/Not Resolved]
  - Graft versus host disease [Fatal]
